FAERS Safety Report 19938722 (Version 8)
Quarter: 2022Q2

REPORT INFORMATION
  Report Type: Report from Study
  Country: CN (occurrence: None)
  Receive Date: 20211011
  Receipt Date: 20220603
  Transmission Date: 20220721
  Serious: Yes (Hospitalization)
  Sender: FDA-Public Use
  Company Number: CN-ROCHE-2930967

PATIENT
  Age: 82 Year
  Sex: Male
  Weight: 72 kg

DRUGS (11)
  1. CABOZANTINIB [Suspect]
     Active Substance: CABOZANTINIB
     Indication: Hepatocellular carcinoma
     Dosage: MOST RECENT DOSE PRIOR TO SAE 02/AUG/2021
     Route: 048
     Dates: start: 20210802, end: 20210929
  2. CABOZANTINIB [Suspect]
     Active Substance: CABOZANTINIB
     Route: 048
     Dates: start: 20211108
  3. ATEZOLIZUMAB [Suspect]
     Active Substance: ATEZOLIZUMAB
     Indication: Hepatocellular carcinoma
     Dosage: MOST RECENT DOSE PRIOR TO SAE 08/SEP/2021
     Route: 041
     Dates: start: 20210802, end: 20210930
  4. HUAI ER KE LI [Concomitant]
  5. OMEPRAZOLE [Concomitant]
     Active Substance: OMEPRAZOLE
     Dates: start: 20210820, end: 20210908
  6. LEUCOGEN [Concomitant]
     Active Substance: LEUCOGEN
     Dates: start: 20210708
  7. LACTULOSE [Concomitant]
     Active Substance: LACTULOSE
     Dates: start: 20210820, end: 20210908
  8. TENOFOVIR DISOPROXIL FUMARATE [Concomitant]
     Active Substance: TENOFOVIR DISOPROXIL FUMARATE
     Dates: start: 2015
  9. LAMIVUDINE [Concomitant]
     Active Substance: LAMIVUDINE
     Dates: start: 201503
  10. TENOFOVIR [Concomitant]
     Active Substance: TENOFOVIR
     Dates: start: 2015
  11. SILYBIN MEGLUMINE [Concomitant]

REACTIONS (3)
  - Hepatic function abnormal [Recovered/Resolved]
  - Blood creatine phosphokinase MB increased [Recovered/Resolved]
  - Ascites [Not Recovered/Not Resolved]

NARRATIVE: CASE EVENT DATE: 20210914
